FAERS Safety Report 8344566 (Version 2)
Quarter: 2012Q4

REPORT INFORMATION
  Report Type: 
  Country: BR (occurrence: BR)
  Receive Date: 20120119
  Receipt Date: 20121018
  Transmission Date: 20130627
  Serious: No
  Sender: FDA-Public Use
  Company Number: BR-ASTRAZENECA-2012SE02260

PATIENT
  Age: 63 Year
  Sex: Male
  Weight: 98 kg

DRUGS (4)
  1. ATACAND HCT [Suspect]
     Indication: HYPERTENSION
     Dosage: 16/12.5 MG DAILY
     Route: 048
     Dates: start: 2004
  2. OMEPRAZOLE [Suspect]
     Indication: ABDOMINAL PAIN
     Route: 048
     Dates: start: 2009
  3. ATORVASTATIN [Concomitant]
     Indication: HYPERCHOLESTEROLAEMIA
     Route: 048
     Dates: start: 2004
  4. ASA [Concomitant]
     Route: 048
     Dates: start: 2009

REACTIONS (8)
  - Blood glucose abnormal [Recovered/Resolved]
  - Visual impairment [Not Recovered/Not Resolved]
  - Blood pressure increased [Recovered/Resolved]
  - Weight increased [Not Recovered/Not Resolved]
  - Abdominal pain [Not Recovered/Not Resolved]
  - Flatulence [Not Recovered/Not Resolved]
  - Dizziness [Not Recovered/Not Resolved]
  - Drug ineffective [Unknown]
